FAERS Safety Report 14560197 (Version 2)
Quarter: 2018Q1

REPORT INFORMATION
  Report Type: Spontaneous
  Country: US (occurrence: US)
  Receive Date: 20180222
  Receipt Date: 20180316
  Transmission Date: 20180509
  Serious: Yes (Other)
  Sender: FDA-Public Use
  Company Number: US-ROCHE-2073149

PATIENT
  Age: 21 Year
  Sex: Female
  Weight: 65.83 kg

DRUGS (6)
  1. ACTEMRA [Suspect]
     Active Substance: TOCILIZUMAB
     Indication: ACNE
     Route: 058
     Dates: start: 20180208, end: 20180209
  2. ACTEMRA [Suspect]
     Active Substance: TOCILIZUMAB
     Indication: EXOSTOSIS
  3. ACTEMRA [Suspect]
     Active Substance: TOCILIZUMAB
     Indication: PUSTULAR PSORIASIS
  4. ACTEMRA [Suspect]
     Active Substance: TOCILIZUMAB
     Indication: SYNOVITIS
     Dosage: THURSDAY ;ONGOING: NO
     Route: 058
     Dates: start: 20180208
  5. ACTEMRA [Suspect]
     Active Substance: TOCILIZUMAB
     Indication: RASH PUSTULAR
  6. ACTEMRA [Suspect]
     Active Substance: TOCILIZUMAB
     Indication: OSTEITIS

REACTIONS (11)
  - Abdominal pain upper [Recovered/Resolved]
  - Urticaria [Unknown]
  - Off label use [Unknown]
  - Fatigue [Not Recovered/Not Resolved]
  - Diarrhoea [Recovered/Resolved]
  - Chest pain [Recovered/Resolved]
  - Dyspnoea [Recovered/Resolved]
  - Chills [Recovered/Resolved]
  - Dizziness [Not Recovered/Not Resolved]
  - Anaphylactic shock [Recovered/Resolved]
  - Intentional product use issue [Unknown]

NARRATIVE: CASE EVENT DATE: 20180208
